FAERS Safety Report 21206260 (Version 1)
Quarter: 2022Q3

REPORT INFORMATION
  Report Type: Spontaneous
  Country: US (occurrence: None)
  Receive Date: 20220811
  Receipt Date: 20220811
  Transmission Date: 20221026
  Serious: No
  Sender: FDA-Public Use
  Company Number: None

PATIENT
  Age: 68 Year
  Sex: Female
  Weight: 77.4 kg

DRUGS (1)
  1. ISOVUE 370 [Suspect]
     Active Substance: IOPAMIDOL
     Indication: Mammogram
     Dosage: OTHER FREQUENCY : ONCE;?
     Route: 040

REACTIONS (2)
  - Sneezing [None]
  - Contrast media reaction [None]

NARRATIVE: CASE EVENT DATE: 20220624
